FAERS Safety Report 6554950-0 (Version None)
Quarter: 2010Q1

REPORT INFORMATION
  Report Type: 
  Country: None (occurrence: None)
  Receive Date: 20100126
  Receipt Date: 20100126
  Transmission Date: 20100710
  Serious: Yes (Hospitalization)
  Sender: FDA-Public Use
  Company Number: None

PATIENT
  Sex: Female
  Weight: 115.82 kg

DRUGS (3)
  1. CARBOPLATIN [Suspect]
     Dosage: 519 MG
  2. TAXOTERE [Suspect]
     Dosage: 150 MG
  3. TAXOL [Suspect]
     Dosage: 120 MG

REACTIONS (4)
  - ABSCESS BACTERIAL [None]
  - CATHETER SITE RELATED REACTION [None]
  - MALAISE [None]
  - NAUSEA [None]
